FAERS Safety Report 4850588-1 (Version None)
Quarter: 2005Q4

REPORT INFORMATION
  Report Type: 
  Country: None (occurrence: None)
  Receive Date: 20051208
  Receipt Date: 20051201
  Transmission Date: 20060501
  Serious: Yes (Other)
  Sender: FDA-Public Use
  Company Number: CA-2005-025475

PATIENT
  Age: 44 Year
  Sex: Female

DRUGS (4)
  1. SOTALOL HCL [Suspect]
     Indication: ATRIAL FIBRILLATION
     Dosage: 160 MG, 2X/DAY, ORAL
     Route: 048
  2. CIPROFLOXACIN [Suspect]
     Indication: PYELONEPHRITIS
     Dosage: SEE IMAGE
     Route: 048
  3. DIGOXIN [Concomitant]
  4. WARFARIN SODIUM [Concomitant]

REACTIONS (7)
  - CARDIOACTIVE DRUG LEVEL DECREASED [None]
  - DIZZINESS [None]
  - DRUG INTERACTION [None]
  - ELECTROCARDIOGRAM QT CORRECTED INTERVAL PROLONGED [None]
  - PYELONEPHRITIS [None]
  - SYNCOPE [None]
  - TORSADE DE POINTES [None]
